FAERS Safety Report 16478360 (Version 1)
Quarter: 2019Q2

REPORT INFORMATION
  Report Type: Spontaneous
  Country: JP (occurrence: JP)
  Receive Date: 20190626
  Receipt Date: 20190626
  Transmission Date: 20190711
  Serious: Yes (Other)
  Sender: FDA-Public Use
  Company Number: JP-PFIZER INC-2019265994

PATIENT

DRUGS (1)
  1. IBRANCE [Suspect]
     Active Substance: PALBOCICLIB

REACTIONS (6)
  - Musculoskeletal stiffness [Unknown]
  - Neutrophil count decreased [Unknown]
  - Constipation [Unknown]
  - Oedema [Unknown]
  - Neuropathy peripheral [Unknown]
  - Stomatitis [Unknown]
